FAERS Safety Report 4701114-9 (Version None)
Quarter: 2005Q2

REPORT INFORMATION
  Report Type: 
  Country: None (occurrence: None)
  Receive Date: 20050628
  Receipt Date: 20050617
  Transmission Date: 20051028
  Serious: Yes (Other)
  Sender: FDA-Public Use
  Company Number: PHBS2005BR08813

PATIENT
  Age: 17 Year
  Sex: Female
  Weight: 66 kg

DRUGS (2)
  1. METHERGINE [Suspect]
     Indication: ABORTION
     Dosage: 0.125 MG, BID
     Route: 048
     Dates: end: 20050516
  2. ALLERGY MEDICATION [Concomitant]
     Dosage: 1 DF, QD
     Route: 048

REACTIONS (10)
  - ALOPECIA [None]
  - BLISTER [None]
  - DANDRUFF [None]
  - DECREASED APPETITE [None]
  - GENERALISED ERYTHEMA [None]
  - PRURITUS [None]
  - PRURITUS GENERALISED [None]
  - SKIN DISCOLOURATION [None]
  - SKIN EXFOLIATION [None]
  - WEIGHT INCREASED [None]
